FAERS Safety Report 6050947-8 (Version None)
Quarter: 2009Q1

REPORT INFORMATION
  Report Type: 
  Country: None (occurrence: None)
  Receive Date: 20090121
  Receipt Date: 20090105
  Transmission Date: 20090719
  Serious: Yes (Other)
  Sender: FDA-Public Use
  Company Number: MPS1-1000124

PATIENT
  Age: 22 Year
  Sex: Female
  Weight: 70 kg

DRUGS (13)
  1. ALDURAZYME [Suspect]
     Indication: MUCOPOLYSACCHARIDOSIS I
     Dosage: 7000 IU, QW, INTRAVENOUS
     Route: 042
  2. ... [Suspect]
  3. ... [Concomitant]
  4. ... [Concomitant]
  5. .... [Concomitant]
  6. ... [Concomitant]
  7. ... [Concomitant]
  8. ... [Concomitant]
  9. .... [Concomitant]
  10. .... [Concomitant]
  11. .... [Concomitant]
  12. .... [Concomitant]
  13. .... [Concomitant]

REACTIONS (2)
  - ABORTION SPONTANEOUS [None]
  - DRUG EXPOSURE DURING PREGNANCY [None]
